FAERS Safety Report 4890471-9 (Version None)
Quarter: 2005Q4

REPORT INFORMATION
  Report Type: 
  Country: None (occurrence: None)
  Receive Date: 20051216
  Receipt Date: 20050825
  Transmission Date: 20060501
  Serious: No
  Sender: FDA-Public Use
  Company Number: BDI-007480

PATIENT
  Sex: Male
  Weight: 59 kg

DRUGS (2)
  1. MULTIHANCE [Suspect]
     Indication: NUCLEAR MAGNETIC RESONANCE IMAGING
     Dosage: 15  ML ONCE IV
     Route: 042
     Dates: start: 20050823, end: 20050823
  2. ANTINEOPLASTIC AGENTS [Concomitant]

REACTIONS (2)
  - NAUSEA [None]
  - VOMITING [None]
